FAERS Safety Report 7538955-9 (Version None)
Quarter: 2011Q2

REPORT INFORMATION
  Report Type: 
  Country: None (occurrence: None)
  Receive Date: 20110610
  Receipt Date: 20110526
  Transmission Date: 20111010
  Serious: Yes (Hospitalization, Other)
  Sender: FDA-Public Use
  Company Number: US-BAYER-201038970NA

PATIENT
  Sex: Female
  Weight: 63 kg

DRUGS (4)
  1. XANAX [Concomitant]
     Indication: ANXIETY
     Dosage: 0.25 MG, UNK
     Route: 048
  2. PROZAC [Concomitant]
     Indication: ANTIDEPRESSANT THERAPY
     Dosage: 20 MG, UNK
     Route: 048
  3. YASMIN [Suspect]
     Indication: MENSTRUAL CYCLE MANAGEMENT
     Dosage: UNK
     Route: 048
     Dates: start: 20060101, end: 20080101
  4. AMITRIPTYLINE HYDROCHLORIDE [Concomitant]
     Dosage: 10 MG, UNK
     Route: 048

REACTIONS (4)
  - POLYCYSTIC OVARIES [None]
  - GALLBLADDER NON-FUNCTIONING [None]
  - HYSTERECTOMY [None]
  - CHOLECYSTITIS CHRONIC [None]
